FAERS Safety Report 22254129 (Version 1)
Quarter: 2023Q2

REPORT INFORMATION
  Report Type: Spontaneous
  Country: MY (occurrence: MY)
  Receive Date: 20230426
  Receipt Date: 20230426
  Transmission Date: 20230722
  Serious: Yes (Other)
  Sender: FDA-Public Use
  Company Number: MY-JNJFOC-20230443372

PATIENT

DRUGS (1)
  1. RYBREVANT [Suspect]
     Active Substance: AMIVANTAMAB-VMJW
     Indication: Non-small cell lung cancer
     Dosage: HE ACTUALLY GIVES 1 OR 2 VIALS EVERY WEEK
     Route: 065

REACTIONS (3)
  - Thrombocytopenia [Unknown]
  - Paronychia [Unknown]
  - Off label use [Unknown]
